FAERS Safety Report 10419805 (Version 1)
Quarter: 2014Q3

REPORT INFORMATION
  Report Type: Spontaneous
  Country: US (occurrence: None)
  Receive Date: 20140828
  Receipt Date: 20140828
  Transmission Date: 20150326
  Serious: Yes (Death)
  Sender: FDA-Public Use
  Company Number: UD-MDCO-14-00196

PATIENT
  Age: 59 Year
  Sex: Male

DRUGS (9)
  1. LIDOCAINE (LIDOCAINE) (1 PERCENT) (LIDOCAINE) [Concomitant]
  2. FLUORO (FLUOROMETHOLONE) (320) (FLUOROMETHOLONE) [Concomitant]
  3. VISIPAQUE (IODIXANOL) (IODIXANOL) [Concomitant]
  4. ANGIOMAX [Suspect]
     Active Substance: BIVALIRUDIN
     Indication: CATHETERISATION CARDIAC
     Route: 040
     Dates: start: 20140702
  5. FENTANYL (FENTANYL) (FENTANYL) [Concomitant]
     Active Substance: FENTANYL
  6. NITROGLYCERN (GLYCERYL TRINITRATE) (GLYCERYL TRINITRATE) [Concomitant]
  7. AMIODARONE (AMIODARONE) (AMIODARONE) [Concomitant]
  8. VERSED (MIDAZOLAM HYDROCHLORIDE) (MIDAZOLAM HYDROCHLORIDE) [Concomitant]
  9. INTEGRILIN (EPTIFIBATIDE) (EPTIFIBATIDE) [Concomitant]

REACTIONS (13)
  - Atrial fibrillation [None]
  - Coronary artery thrombosis [None]
  - Tachycardia [None]
  - Hypokinesia [None]
  - Haemoglobin decreased [None]
  - Acute myocardial infarction [None]
  - Coronary artery disease [None]
  - Blood urea abnormal [None]
  - Blood creatine abnormal [None]
  - Chest pain [None]
  - Akinesia [None]
  - Procedural complication [None]
  - Aortic stenosis [None]

NARRATIVE: CASE EVENT DATE: 20140702
